FAERS Safety Report 4677193-4 (Version None)
Quarter: 2005Q2

REPORT INFORMATION
  Report Type: 
  Country: None (occurrence: None)
  Receive Date: 20050531
  Receipt Date: 20050519
  Transmission Date: 20051028
  Serious: Yes (Hospitalization)
  Sender: FDA-Public Use
  Company Number: US-JNJFOC-20050505959

PATIENT
  Sex: Female
  Weight: 77.11 kg

DRUGS (12)
  1. INFLIXIMAB [Suspect]
     Indication: RHEUMATOID ARTHRITIS
     Route: 042
  2. ASPIRIN [Concomitant]
  3. CALCIUM GLUCONATE [Concomitant]
  4. DIOVAN [Concomitant]
     Dosage: 80/12.5 MG DAILY
  5. FOLIC ACID [Concomitant]
  6. PREDNISONE [Concomitant]
  7. PREMARIN [Concomitant]
  8. SYNTHROID [Concomitant]
  9. ZYRTEC [Concomitant]
  10. METHOTREXATE [Concomitant]
  11. PROTONIX [Concomitant]
  12. ACTONEL [Concomitant]

REACTIONS (4)
  - EYE PAIN [None]
  - HEADACHE [None]
  - HERPES ZOSTER [None]
  - RASH VESICULAR [None]
